FAERS Safety Report 5412826-6 (Version None)
Quarter: 2007Q3

REPORT INFORMATION
  Report Type: 
  Country: None (occurrence: None)
  Receive Date: 20070713
  Receipt Date: 20070510
  Transmission Date: 20080115
  Serious: No
  Sender: FDA-Public Use
  Company Number: 2007SP001746

PATIENT
  Age: 48 Year
  Sex: Female
  Weight: 78.9259 kg

DRUGS (3)
  1. LUNESTA [Suspect]
     Indication: INSOMNIA
     Dosage: 3MG; 1X; ORAL , 3MG; HS;ORAL
     Route: 048
     Dates: start: 20070502, end: 20070502
  2. LUNESTA [Suspect]
     Indication: INSOMNIA
     Dosage: 3MG; 1X; ORAL , 3MG; HS;ORAL
     Route: 048
     Dates: start: 20070509
  3. LOVASTATIN [Concomitant]

REACTIONS (3)
  - DYSGEUSIA [None]
  - MIDDLE INSOMNIA [None]
  - NAUSEA [None]
